FAERS Safety Report 16398365 (Version 1)
Quarter: 2019Q2

REPORT INFORMATION
  Report Type: Spontaneous
  Country: GB (occurrence: GB)
  Receive Date: 20190606
  Receipt Date: 20190606
  Transmission Date: 20190711
  Serious: Yes (Other)
  Sender: FDA-Public Use
  Company Number: GB-PFIZER INC-2019233944

PATIENT
  Age: 17 Year
  Sex: Female
  Weight: 65.77 kg

DRUGS (2)
  1. QUETIAPINE. [Concomitant]
     Active Substance: QUETIAPINE
     Dosage: 50 MG, 1X/DAY (IN THE EVENING)
  2. SERTRALINE HCL [Suspect]
     Active Substance: SERTRALINE HYDROCHLORIDE
     Indication: ANXIETY
     Dosage: 150 MG, UNK
     Route: 048
     Dates: start: 20190426

REACTIONS (5)
  - Decreased appetite [Unknown]
  - Hyperventilation [Unknown]
  - Panic reaction [Unknown]
  - Dizziness [Recovered/Resolved]
  - Anxiety [Recovering/Resolving]

NARRATIVE: CASE EVENT DATE: 20190427
